FAERS Safety Report 11913094 (Version 1)
Quarter: 2016Q1

REPORT INFORMATION
  Report Type: Spontaneous
  Country: IT (occurrence: IT)
  Receive Date: 20160113
  Receipt Date: 20160113
  Transmission Date: 20160526
  Serious: Yes (Hospitalization)
  Sender: FDA-Public Use
  Company Number: IT-HORIZON-PRE-0003-2016

PATIENT
  Age: 11 Year
  Sex: Male

DRUGS (4)
  1. VINCRISTINE [Suspect]
     Active Substance: VINCRISTINE
     Indication: CHEMOTHERAPY
     Dosage: 1.5 MG/M2, WEEKLY
     Dates: start: 20150812, end: 20150902
  2. PREDNISONE. [Suspect]
     Active Substance: PREDNISONE
     Indication: CHEMOTHERAPY
     Dosage: 87.5 MG DAILY
     Route: 048
     Dates: start: 20150805, end: 20150902
  3. DAUNORUBICIN [Suspect]
     Active Substance: DAUNORUBICIN
     Indication: CHEMOTHERAPY
     Dosage: 30 MG/M2 WEEKLY
     Dates: start: 20150812, end: 20150902
  4. L-ASPARAGINASE [Suspect]
     Active Substance: ASPARAGINASE
     Indication: CHEMOTHERAPY
     Route: 042
     Dates: start: 20150817, end: 20150831

REACTIONS (4)
  - Coagulopathy [Unknown]
  - Gamma-glutamyltransferase increased [Unknown]
  - Bilirubin conjugated increased [Unknown]
  - Jaundice [Unknown]

NARRATIVE: CASE EVENT DATE: 20150903
